FAERS Safety Report 7310160-0 (Version None)
Quarter: 2011Q1

REPORT INFORMATION
  Report Type: 
  Country: None (occurrence: None)
  Receive Date: 20110224
  Receipt Date: 20110215
  Transmission Date: 20110831
  Serious: No
  Sender: FDA-Public Use
  Company Number: US-PFIZER INC-2011033504

PATIENT
  Sex: Male
  Weight: 90.7 kg

DRUGS (6)
  1. AMLODIPINE/VALSARTAN [Concomitant]
     Indication: HYPERTENSION
     Dosage: UNK
  2. LIPITOR [Suspect]
     Dosage: UNK
  3. BISELECT [Concomitant]
     Indication: HYPERTENSION
     Dosage: UNK
  4. CRESTOR [Suspect]
     Dosage: UNK
  5. ACETYLSALICYLIC ACID [Concomitant]
     Indication: PROPHYLAXIS
     Dosage: 81 MG, UNK
  6. NIASPAN [Concomitant]
     Indication: BLOOD CHOLESTEROL INCREASED
     Dosage: 500 MG, 1X/DAY
     Dates: start: 20100601

REACTIONS (1)
  - BLOOD CREATINE PHOSPHOKINASE INCREASED [None]
